FAERS Safety Report 20730060 (Version 7)
Quarter: 2022Q3

REPORT INFORMATION
  Report Type: Report from Study
  Country: KR (occurrence: KR)
  Receive Date: 20220420
  Receipt Date: 20220909
  Transmission Date: 20221027
  Serious: Yes (Hospitalization)
  Sender: FDA-Public Use
  Company Number: KR-NOVARTISPH-NVSC2022KR085525

PATIENT
  Age: 78 Year
  Sex: Male
  Weight: 58.5 kg

DRUGS (11)
  1. TRAMETINIB [Suspect]
     Active Substance: TRAMETINIB
     Indication: Thyroid cancer
     Dosage: UNK
     Route: 048
     Dates: start: 20220117, end: 20220412
  2. DABRAFENIB [Suspect]
     Active Substance: DABRAFENIB
     Indication: Thyroid cancer
     Dosage: UNK
     Route: 048
     Dates: start: 20220117, end: 20220412
  3. FEROBA YOU [Concomitant]
     Indication: Duodenal ulcer
     Dosage: UNK
     Route: 065
     Dates: start: 20220323
  4. AMOSARTAN [Concomitant]
     Indication: Essential hypertension
     Dosage: UNK
     Route: 065
     Dates: start: 20150729
  5. GASOCOL [Concomitant]
     Indication: Endoscopy
     Dosage: SUSPENSION
     Route: 065
     Dates: start: 20220412, end: 20220412
  6. NORVASC [Concomitant]
     Active Substance: AMLODIPINE BESYLATE
     Indication: Essential hypertension
     Dosage: UNK
     Route: 065
     Dates: start: 20220323
  7. CICIBON [Concomitant]
     Indication: Mineral supplementation
     Dosage: UNK
     Route: 065
     Dates: start: 20210823
  8. RABIET [Concomitant]
     Indication: Thyroid cancer
     Dosage: UNK
     Route: 065
     Dates: start: 20220215, end: 20220412
  9. LIDOCAINE VISCOUS [Concomitant]
     Active Substance: LIDOCAINE HYDROCHLORIDE
     Indication: Endoscopy
     Dosage: UNK
     Route: 065
     Dates: start: 20220412, end: 20220412
  10. SYNTHYROXINE(LEVOTHYROXINE) [Concomitant]
     Indication: Thyroidectomy
     Dosage: UNK
     Route: 065
     Dates: start: 20211115, end: 20220412
  11. ONEALFA(ALFACALCIDOL) [Concomitant]
     Indication: Thyroidectomy
     Dosage: UNK
     Route: 065
     Dates: start: 20211115

REACTIONS (1)
  - Duodenal ulcer [Recovering/Resolving]

NARRATIVE: CASE EVENT DATE: 20220412
